FAERS Safety Report 4716340-2 (Version None)
Quarter: 2005Q3

REPORT INFORMATION
  Report Type: 
  Country: None (occurrence: None)
  Receive Date: 20050711
  Receipt Date: 20050429
  Transmission Date: 20060218
  Serious: Yes (Other)
  Sender: FDA-Public Use
  Company Number: ENTC2005-0088

PATIENT
  Age: 62 Year
  Sex: Female

DRUGS (4)
  1. STALEVO 100 [Suspect]
     Indication: PARKINSON'S DISEASE
     Dosage: 150MG/37.5MG/200MG QID, ORAL
     Route: 048
     Dates: start: 20041101
  2. MIRADEX(UNKNOWN) [Concomitant]
  3. REMERON(UNKNOWN) [Concomitant]
  4. SINEMET [Concomitant]

REACTIONS (3)
  - DRUG EFFECT DECREASED [None]
  - FATIGUE [None]
  - TREMOR [None]
